FAERS Safety Report 20347822 (Version 2)
Quarter: 2022Q1

REPORT INFORMATION
  Report Type: Spontaneous
  Country: GB (occurrence: GB)
  Receive Date: 20220118
  Receipt Date: 20220223
  Transmission Date: 20220423
  Serious: Yes (Other)
  Sender: FDA-Public Use
  Company Number: GB-SEATTLE GENETICS-2022SGN00172

PATIENT
  Sex: Female

DRUGS (3)
  1. TUKYSA [Suspect]
     Active Substance: TUCATINIB
     Indication: Invasive ductal breast carcinoma
     Dosage: UNK
     Route: 065
     Dates: start: 202103
  2. HERCEPTIN [Concomitant]
     Active Substance: TRASTUZUMAB
     Indication: Invasive ductal breast carcinoma
     Route: 065
  3. CAPECITABINE [Concomitant]
     Active Substance: CAPECITABINE
     Indication: Invasive ductal breast carcinoma
     Route: 065

REACTIONS (5)
  - Osteonecrosis of jaw [Unknown]
  - Sinus disorder [Unknown]
  - Hypoaesthesia [Unknown]
  - Tremor [Unknown]
  - Diarrhoea [Unknown]
